FAERS Safety Report 9083738 (Version 1)
Quarter: 2013Q1

REPORT INFORMATION
  Report Type: Report from Study
  Country: US (occurrence: US)
  Receive Date: 20130129
  Receipt Date: 20130129
  Transmission Date: 20140127
  Serious: No
  Sender: FDA-Public Use
  Company Number: US-ABBOTT-12P-163-0946862-00

PATIENT
  Age: 65 Year
  Sex: Female

DRUGS (9)
  1. HUMIRA 40 MG/0.8 ML PEN [Suspect]
     Indication: CROHN^S DISEASE
     Dosage: 160MG ON 07 JUN 2012
     Dates: start: 20120607, end: 20120607
  2. PENTASA [Concomitant]
     Indication: PAIN
     Dosage: 4000MG = 8 500MG PILLS DAILY
  3. DIOVAN HCT [Concomitant]
     Indication: BLOOD PRESSURE
     Dosage: 80/12.5MG TWICE DAILY
  4. KLOR-CON [Concomitant]
     Indication: PRODUCT USED FOR UNKNOWN INDICATION
     Dosage: 1 TABLET TWICE A DAY WITH BLOOD PRESSURE MEDICATION
  5. QUALAQUIN [Concomitant]
     Indication: MUSCLE SPASMS
  6. XANAX [Concomitant]
     Indication: PRODUCT USED FOR UNKNOWN INDICATION
  7. NEXIUM [Concomitant]
     Indication: PRODUCT USED FOR UNKNOWN INDICATION
  8. CALCIUM WITH VITAMIN D [Concomitant]
     Indication: PRODUCT USED FOR UNKNOWN INDICATION
  9. VITAMIN D [Concomitant]
     Indication: PRODUCT USED FOR UNKNOWN INDICATION

REACTIONS (1)
  - Infrequent bowel movements [Recovered/Resolved]
